FAERS Safety Report 4759787-0 (Version None)
Quarter: 2005Q3

REPORT INFORMATION
  Report Type: 
  Country: None (occurrence: None)
  Receive Date: 20050902
  Receipt Date: 20050706
  Transmission Date: 20060218
  Serious: Yes (Hospitalization, Congenital Anomaly)
  Sender: FDA-Public Use
  Company Number: FR-RB-1851-2005

PATIENT
  Sex: Female
  Weight: 2.9 kg

DRUGS (2)
  1. BUPRENORPHINE HCL [Suspect]
     Indication: DRUG USE FOR UNKNOWN INDICATION
     Route: 065
     Dates: end: 20050508
  2. FLUOXETINE HCL [Suspect]
     Indication: DRUG USE FOR UNKNOWN INDICATION
     Dosage: DOSAGE UNKNOWN
     Route: 065
     Dates: end: 20050508

REACTIONS (15)
  - BLEPHAROPHIMOSIS [None]
  - CLEFT UVULA [None]
  - CONVULSION NEONATAL [None]
  - DRUG EXPOSURE DURING PREGNANCY [None]
  - FACIAL DYSMORPHISM [None]
  - HIGH ARCHED PALATE [None]
  - HYPERTELORISM OF ORBIT [None]
  - HYPOTONIA NEONATAL [None]
  - IIIRD NERVE DISORDER [None]
  - MOEBIUS II SYNDROME [None]
  - NEONATAL APNOEIC ATTACK [None]
  - NEONATAL ASPIRATION [None]
  - NEONATAL INFECTION [None]
  - PIERRE ROBIN SYNDROME [None]
  - TALIPES [None]
